FAERS Safety Report 17116390 (Version 2)
Quarter: 2019Q4

REPORT INFORMATION
  Report Type: Spontaneous
  Country: JP (occurrence: JP)
  Receive Date: 20191205
  Receipt Date: 20191220
  Transmission Date: 20200122
  Serious: Yes (Hospitalization, Disabling)
  Sender: FDA-Public Use
  Company Number: JP-JNJFOC-20191135403

PATIENT
  Age: 85 Year
  Sex: Male
  Weight: 54.2 kg

DRUGS (9)
  1. ERLEADA [Suspect]
     Active Substance: APALUTAMIDE
     Indication: HORMONE-REFRACTORY PROSTATE CANCER
     Dosage: APALUTAMIDE: 60 MG
     Route: 048
     Dates: start: 20191017, end: 20191105
  2. FUROSEMIDE. [Concomitant]
     Active Substance: FUROSEMIDE
     Indication: OEDEMA DUE TO RENAL DISEASE
     Route: 048
     Dates: start: 20191108
  3. FUROSEMIDE. [Concomitant]
     Active Substance: FUROSEMIDE
     Route: 048
     Dates: start: 20191109
  4. AMLODIPINE [Concomitant]
     Active Substance: AMLODIPINE BESYLATE
     Indication: HYPERTENSION
     Route: 048
  5. GLUTATHIONE [Concomitant]
     Active Substance: GLUTATHIONE
     Indication: TOXICITY TO VARIOUS AGENTS
     Dosage: 1 DOSE FORM
     Route: 048
     Dates: start: 20191101, end: 20191108
  6. TAMSULOSIN HYDROCHLORIDE. [Concomitant]
     Active Substance: TAMSULOSIN HYDROCHLORIDE
     Indication: BENIGN PROSTATIC HYPERPLASIA
     Route: 048
     Dates: end: 20191031
  7. EFINACONAZOLE [Concomitant]
     Active Substance: EFINACONAZOLE
     Indication: DERMATOPHYTOSIS OF NAIL
     Route: 051
  8. FEBURIC [Concomitant]
     Active Substance: FEBUXOSTAT
     Indication: HYPERURICAEMIA
     Route: 048
  9. ALFACALCIDOL [Concomitant]
     Active Substance: ALFACALCIDOL
     Indication: OSTEOPOROSIS
     Route: 048

REACTIONS (3)
  - Hepatic function abnormal [Unknown]
  - Cardiac dysfunction [Recovering/Resolving]
  - Renal impairment [Recovered/Resolved with Sequelae]

NARRATIVE: CASE EVENT DATE: 20191101
